FAERS Safety Report 4929183-1 (Version None)
Quarter: 2006Q1

REPORT INFORMATION
  Report Type: 
  Country: None (occurrence: None)
  Receive Date: 20060301
  Receipt Date: 20051021
  Transmission Date: 20060701
  Serious: Yes (Death, Hospitalization)
  Sender: FDA-Public Use
  Company Number: US-MERCK-0510USA08829

PATIENT
  Age: 71 Year
  Sex: Male
  Weight: 91 kg

DRUGS (6)
  1. VIOXX [Suspect]
     Indication: PAIN
     Route: 048
     Dates: start: 20000701, end: 20020216
  2. LESCOL [Concomitant]
     Route: 065
  3. ZESTRIL [Concomitant]
     Route: 065
  4. ZYLOPRIM [Concomitant]
     Route: 065
  5. SYNTHROID [Concomitant]
     Route: 065
  6. CELEBREX [Concomitant]
     Route: 065
     Dates: start: 20000630

REACTIONS (10)
  - ARTHRITIS INFECTIVE [None]
  - CEREBRAL INFARCTION [None]
  - CEREBROVASCULAR ACCIDENT [None]
  - CONVULSION [None]
  - EMOTIONAL DISTRESS [None]
  - GENERAL SYMPTOM [None]
  - MYOGLOBINAEMIA [None]
  - PAIN [None]
  - PNEUMONIA ASPIRATION [None]
  - RENAL FAILURE ACUTE [None]
